FAERS Safety Report 7510221-7 (Version None)
Quarter: 2011Q2

REPORT INFORMATION
  Report Type: 
  Country: None (occurrence: None)
  Receive Date: 20110527
  Receipt Date: 20101109
  Transmission Date: 20111010
  Serious: No
  Sender: FDA-Public Use
  Company Number: US-BAYER-201040821NA

PATIENT
  Sex: Female

DRUGS (1)
  1. AVELOX [Suspect]
     Indication: ANTIBIOTIC THERAPY
     Dosage: 400 MG, QD
     Route: 048
     Dates: start: 20101106, end: 20101106

REACTIONS (8)
  - PARAESTHESIA [None]
  - DRY MOUTH [None]
  - DIZZINESS [None]
  - THINKING ABNORMAL [None]
  - BACK PAIN [None]
  - LIP SWELLING [None]
  - MENTAL DISORDER [None]
  - CONFUSIONAL STATE [None]
